FAERS Safety Report 16149446 (Version 1)
Quarter: 2019Q2

REPORT INFORMATION
  Report Type: Spontaneous
  Country: FR (occurrence: FR)
  Receive Date: 20190402
  Receipt Date: 20190402
  Transmission Date: 20190711
  Serious: Yes (Life-Threatening)
  Sender: FDA-Public Use
  Company Number: FR-PURDUE-GBR-2019-0065398

PATIENT
  Age: 77 Year
  Sex: Male

DRUGS (9)
  1. LASILIX                            /00032602/ [Concomitant]
  2. INEXIUM                            /01479302/ [Concomitant]
     Active Substance: ESOMEPRAZOLE MAGNESIUM
  3. KLIPAL                             /01259001/ [Suspect]
     Active Substance: ACETAMINOPHEN\CODEINE PHOSPHATE
     Indication: PAIN
     Dosage: 3 DF, DAILY (STRENGTH 600 MG/50 MG)
     Route: 048
     Dates: end: 20180809
  4. LEVOTHYROX [Concomitant]
     Active Substance: LEVOTHYROXINE
  5. DUPHALAC [Concomitant]
     Active Substance: LACTULOSE
  6. KARDEGIC [Concomitant]
     Active Substance: ASPIRIN DL-LYSINE
  7. OXYNORM [Suspect]
     Active Substance: OXYCODONE HYDROCHLORIDE
     Indication: PAIN
     Dosage: 10 MG, AS NECESSARY (STRENGTH 10MG)
     Route: 048
     Dates: end: 20180809
  8. PREVISCAN                          /00789001/ [Concomitant]
     Active Substance: FLUINDIONE
  9. OXYCONTIN [Suspect]
     Active Substance: OXYCODONE HYDROCHLORIDE
     Indication: PRODUCT USED FOR UNKNOWN INDICATION
     Dosage: 60 MG, DAILY (STRENGTH 30MG)
     Route: 048
     Dates: end: 20180809

REACTIONS (1)
  - Cardio-respiratory arrest [Recovered/Resolved with Sequelae]

NARRATIVE: CASE EVENT DATE: 20180809
